FAERS Safety Report 17761601 (Version 1)
Quarter: 2020Q2

REPORT INFORMATION
  Report Type: Spontaneous
  Country: US (occurrence: US)
  Receive Date: 20200508
  Receipt Date: 20200508
  Transmission Date: 20200714
  Serious: Yes (Death, Hospitalization, Other)
  Sender: FDA-Public Use
  Company Number: NVSC2020US116458

PATIENT
  Age: 5 Year
  Sex: Male

DRUGS (27)
  1. GLEEVEC [Suspect]
     Active Substance: IMATINIB MESYLATE
     Indication: PRODUCT USED FOR UNKNOWN INDICATION
     Dosage: 3 MG/ML
     Route: 048
  2. JAKAFI [Suspect]
     Active Substance: RUXOLITINIB
     Indication: ACUTE LYMPHOCYTIC LEUKAEMIA
  3. TRIAMCINOLONE [Concomitant]
     Active Substance: TRIAMCINOLONE
     Indication: PRODUCT USED FOR UNKNOWN INDICATION
     Dosage: 0.1% 1 APPLICATION QDAY (0900), PRN
     Route: 061
  4. ERYTHROMYCIN. [Concomitant]
     Active Substance: ERYTHROMYCIN
     Indication: PRODUCT USED FOR UNKNOWN INDICATION
     Dosage: 72 MG 1.8 ML, Q6H
     Route: 048
  5. ONDANSETRON [Concomitant]
     Active Substance: ONDANSETRON
     Indication: VOMITING
  6. CASTOR OIL. [Concomitant]
     Active Substance: CASTOR OIL
     Indication: DRY SKIN
     Dosage: 1 APPLICATION, AS DIRECTED, PRN
     Route: 061
  7. PAROEX [Concomitant]
     Active Substance: CHLORHEXIDINE GLUCONATE
     Indication: PRODUCT USED FOR UNKNOWN INDICATION
     Dosage: 10 ML, TID, (SWISH AND SPIT)
     Route: 061
  8. POSACONAZOLE [Concomitant]
     Active Substance: POSACONAZOLE
     Indication: PROPHYLAXIS
     Dosage: 84 MG, TID, WITH FULL MEAL
     Route: 048
  9. VANCOMYCIN [Concomitant]
     Active Substance: VANCOMYCIN
     Indication: PRODUCT USED FOR UNKNOWN INDICATION
     Dosage: 208.5 MG, SINGLE
     Route: 042
  10. MVI [Concomitant]
     Active Substance: VITAMINS
     Indication: PRODUCT USED FOR UNKNOWN INDICATION
     Dosage: UNK
     Route: 065
  11. ATOVAQUONE. [Concomitant]
     Active Substance: ATOVAQUONE
     Indication: PROPHYLAXIS
     Dosage: 390 MG 2.6 ML, QDAY (0900)
     Route: 048
  12. PERIACTIN [Concomitant]
     Active Substance: CYPROHEPTADINE HYDROCHLORIDE
     Indication: PRODUCT USED FOR UNKNOWN INDICATION
     Dosage: UNK, BID, (2 MG 5 ML)
     Route: 048
  13. MEROPENEM. [Concomitant]
     Active Substance: MEROPENEM
     Indication: PRODUCT USED FOR UNKNOWN INDICATION
     Dosage: 278 MG
     Route: 042
  14. BALSAM [Concomitant]
     Indication: PRODUCT USED FOR UNKNOWN INDICATION
     Route: 061
  15. GLEEVEC [Suspect]
     Active Substance: IMATINIB MESYLATE
     Dosage: 200 MG, QD, QPM
     Route: 048
  16. ACETAMINOPHEN. [Concomitant]
     Active Substance: ACETAMINOPHEN
     Indication: PRODUCT USED FOR UNKNOWN INDICATION
     Dosage: 160 MG/ 5 ML Q6H PRN
     Route: 048
  17. ACYCLOVIR. [Concomitant]
     Active Substance: ACYCLOVIR
     Indication: PROPHYLAXIS
     Dosage: 40 MG/ML
     Route: 048
  18. TRYPSIN [Concomitant]
     Active Substance: TRYPSIN
     Indication: DRY SKIN
     Dosage: 1 APPLICATION, AS DIRECTED, PRN
     Route: 061
  19. VITAMIN D3 [Concomitant]
     Active Substance: CHOLECALCIFEROL
     Indication: PRODUCT USED FOR UNKNOWN INDICATION
     Dosage: 2000 INTERNATIONAL UNIT 5 ML, Q24H
     Route: 048
  20. AVEENO [Concomitant]
     Active Substance: DIMETHICONE\HOMOSALATE\OCTINOXATE\OCTISALATE\TITANIUM DIOXIDE
     Indication: DRY SKIN
     Dosage: BID, 1 APPLICATION
     Route: 061
  21. NACL [Concomitant]
     Active Substance: SODIUM CHLORIDE
     Indication: PRODUCT USED FOR UNKNOWN INDICATION
     Dosage: 280 ML,  09.% BOLUS ONCE
     Route: 042
  22. ONDANSETRON [Concomitant]
     Active Substance: ONDANSETRON
     Indication: NAUSEA
     Dosage: UNK, Q8H, (2 MG 2.5 ML)
     Route: 048
  23. JAKAFI [Suspect]
     Active Substance: RUXOLITINIB
     Indication: CHRONIC GRAFT VERSUS HOST DISEASE
     Dosage: 7.5 MG, QD, (15 MILLIGRAM TABLET)
     Route: 048
     Dates: start: 20191008
  24. LANSOPRAZOLE. [Concomitant]
     Active Substance: LANSOPRAZOLE
     Indication: PRODUCT USED FOR UNKNOWN INDICATION
     Dosage: UNK UNK, BID, (15 MG 5 ML)
     Route: 048
  25. SIROLIMUS. [Concomitant]
     Active Substance: SIROLIMUS
     Indication: PRODUCT USED FOR UNKNOWN INDICATION
     Dosage: 0.6 MG 0.6 ML Q24H
     Route: 048
  26. TACROLIMUS. [Concomitant]
     Active Substance: TACROLIMUS
     Indication: PRODUCT USED FOR UNKNOWN INDICATION
     Dosage: 0.4 MG, Q12H
     Route: 048
  27. POLY-VI-SOL WITH IRON [Concomitant]
     Active Substance: IRON\VITAMINS
     Indication: PRODUCT USED FOR UNKNOWN INDICATION
     Dosage: 1 ML, Q24H, (0800)
     Route: 048

REACTIONS (54)
  - Serratia bacteraemia [Unknown]
  - Hypogammaglobulinaemia [Unknown]
  - Hypoxia [Unknown]
  - Pain in extremity [Unknown]
  - Myositis [Unknown]
  - Atelectasis [Unknown]
  - Serratia sepsis [Fatal]
  - Immunodeficiency [Unknown]
  - Asplenia [Unknown]
  - Proctitis [Unknown]
  - Bone marrow disorder [Unknown]
  - Mydriasis [Unknown]
  - Enterococcal bacteraemia [Unknown]
  - Pleural effusion [Unknown]
  - Lung disorder [Unknown]
  - Condition aggravated [Unknown]
  - Oxygen saturation decreased [Unknown]
  - Osteopenia [Unknown]
  - Incorrect dose administered [Unknown]
  - Pain [Unknown]
  - Colitis [Unknown]
  - Bronchogram abnormal [Unknown]
  - Musculoskeletal disorder [Unknown]
  - Anaemia [Unknown]
  - Enterococcal sepsis [Fatal]
  - Acute respiratory distress syndrome [Unknown]
  - Cardiac arrest [Unknown]
  - Pupil fixed [Unknown]
  - Thrombocytopenia [Unknown]
  - Bladder hypertrophy [Unknown]
  - Lung opacity [Unknown]
  - Culture urine positive [Unknown]
  - Chest expansion decreased [Unknown]
  - Neovascularisation [Unknown]
  - Oedema peripheral [Unknown]
  - Off label use [Unknown]
  - Klebsiella bacteraemia [Unknown]
  - Hypoventilation [Unknown]
  - Hepatotoxicity [Unknown]
  - Pruritus allergic [Unknown]
  - Hepatic steatosis [Unknown]
  - Extremity contracture [Unknown]
  - Agitation [Unknown]
  - Abdominal pain [Unknown]
  - Physical deconditioning [Unknown]
  - Hypotension [Unknown]
  - Skin disorder [Unknown]
  - Diarrhoea [Unknown]
  - Product use issue [Unknown]
  - Klebsiella sepsis [Fatal]
  - Vascular device infection [Unknown]
  - Thrombosis in device [Unknown]
  - Hepatic enzyme increased [Unknown]
  - Decreased appetite [Unknown]

NARRATIVE: CASE EVENT DATE: 20191008
